FAERS Safety Report 12888237 (Version 1)
Quarter: 2016Q4

REPORT INFORMATION
  Report Type: Spontaneous
  Country: FR (occurrence: FR)
  Receive Date: 20161027
  Receipt Date: 20161027
  Transmission Date: 20170207
  Serious: Yes (Hospitalization)
  Sender: FDA-Public Use
  Company Number: FR-ROCHE-1847439

PATIENT
  Age: 75 Year
  Sex: Female

DRUGS (8)
  1. LEXOMIL [Concomitant]
     Active Substance: BROMAZEPAM
     Route: 048
  2. ABSTRAL [Concomitant]
     Active Substance: FENTANYL CITRATE
     Route: 048
  3. SOLUPRED (FRANCE) [Concomitant]
     Active Substance: PREDNISOLONE
  4. VERSATIS [Concomitant]
     Active Substance: LIDOCAINE
  5. INEXIUM [Concomitant]
     Active Substance: ESOMEPRAZOLE
  6. XELODA [Suspect]
     Active Substance: CAPECITABINE
     Indication: BREAST CANCER
     Route: 048
     Dates: start: 20160912, end: 20161003
  7. DUROGESIC [Concomitant]
     Active Substance: FENTANYL
     Route: 062
  8. LYRICA [Concomitant]
     Active Substance: PREGABALIN
     Route: 048

REACTIONS (3)
  - Diarrhoea [Unknown]
  - Asthenia [Not Recovered/Not Resolved]
  - General physical health deterioration [Not Recovered/Not Resolved]

NARRATIVE: CASE EVENT DATE: 20160914
